FAERS Safety Report 16428074 (Version 1)
Quarter: 2019Q2

REPORT INFORMATION
  Report Type: Spontaneous
  Country: US (occurrence: US)
  Receive Date: 20190613
  Receipt Date: 20190613
  Transmission Date: 20190711
  Serious: No
  Sender: FDA-Public Use
  Company Number: US-PFIZER INC-2019251980

PATIENT
  Age: 86 Year
  Sex: Male
  Weight: 74.84 kg

DRUGS (4)
  1. ADVIL LIQUI-GELS [Suspect]
     Active Substance: IBUPROFEN
     Indication: PAIN
     Dosage: UNK, 2X/DAY (MAYBE SOMETIME TWICE A DAY)
     Route: 048
  2. TYLENOL [Concomitant]
     Active Substance: ACETAMINOPHEN
     Indication: PAIN
     Dosage: 1500 MG, ALTERNATE DAY (500 MG THREE TIMES A DAY)/ (EVERY OTHER DAY)
  3. ADVIL LIQUI-GELS [Suspect]
     Active Substance: IBUPROFEN
     Indication: BACK PAIN
     Dosage: UNK, 1X/DAY (RANDOMLY ONCE A DAY)
     Route: 048
  4. ADVIL LIQUI-GELS [Suspect]
     Active Substance: IBUPROFEN
     Dosage: 600 MG, ALTERNATE DAY (200MG LIQUIGEL THREE TIMES EVERY OTHER DAY)
     Route: 048

REACTIONS (3)
  - Intentional product misuse [Unknown]
  - Intervertebral disc degeneration [Unknown]
  - Condition aggravated [Unknown]
